FAERS Safety Report 22093420 (Version 1)
Quarter: 2023Q1

REPORT INFORMATION
  Report Type: Spontaneous
  Country: US (occurrence: None)
  Receive Date: 20230313
  Receipt Date: 20230313
  Transmission Date: 20230418
  Serious: Yes (Life-Threatening, Disabling, Other)
  Sender: FDA-Public Use
  Company Number: None

PATIENT
  Age: 35 Year
  Sex: Male
  Weight: 61.65 kg

DRUGS (6)
  1. SYNTHROID [Suspect]
     Active Substance: LEVOTHYROXINE SODIUM
     Indication: Autoimmune thyroiditis
  2. SERTRALINE [Suspect]
     Active Substance: SERTRALINE HYDROCHLORIDE
  3. SYNTHROID [Suspect]
     Active Substance: LEVOTHYROXINE SODIUM
  4. UNSPECIFIED INGREDIENT [Concomitant]
     Active Substance: UNSPECIFIED INGREDIENT
  5. VITAMIN B12 [Concomitant]
     Active Substance: CYANOCOBALAMIN
  6. VITAMINS [Concomitant]
     Active Substance: VITAMINS

REACTIONS (18)
  - Hypothyroidism [None]
  - Product use issue [None]
  - Loss of consciousness [None]
  - Feeling cold [None]
  - Hyperhidrosis [None]
  - Fine motor skill dysfunction [None]
  - Thyrotoxic crisis [None]
  - Headache [None]
  - Cardiac disorder [None]
  - Mood swings [None]
  - Dizziness [None]
  - Liver disorder [None]
  - Stress [None]
  - Hyperthyroidism [None]
  - Eye disorder [None]
  - Feeling of body temperature change [None]
  - Hyperglycaemia [None]
  - Brief resolved unexplained event [None]

NARRATIVE: CASE EVENT DATE: 20200827
